FAERS Safety Report 14009459 (Version 1)
Quarter: 2017Q3

REPORT INFORMATION
  Report Type: Spontaneous
  Country: US (occurrence: US)
  Receive Date: 20170925
  Receipt Date: 20170925
  Transmission Date: 20171128
  Serious: Yes (Other)
  Sender: FDA-Public Use
  Company Number: US-AMGEN-USASP2017141940

PATIENT
  Age: 15 Year
  Sex: Male

DRUGS (1)
  1. BLINCYTO [Suspect]
     Active Substance: BLINATUMOMAB
     Indication: ACUTE LYMPHOCYTIC LEUKAEMIA
     Dosage: 5 MUG, UNK
     Route: 065
     Dates: start: 20170912

REACTIONS (5)
  - Lip swelling [Unknown]
  - Pyrexia [Unknown]
  - Pruritus [Unknown]
  - Hypotension [Unknown]
  - Mouth swelling [Unknown]

NARRATIVE: CASE EVENT DATE: 201709
